FAERS Safety Report 5171063-3 (Version None)
Quarter: 2006Q4

REPORT INFORMATION
  Report Type: 
  Country: None (occurrence: None)
  Receive Date: 20061213
  Receipt Date: 20061208
  Transmission Date: 20070319
  Serious: Yes (Hospitalization)
  Sender: FDA-Public Use
  Company Number: US-GLAXOSMITHKLINE-A0630953A

PATIENT
  Age: 36 Year
  Sex: Female

DRUGS (6)
  1. WELLBUTRIN XL [Suspect]
     Indication: DEPRESSION
     Dosage: 150MG PER DAY
     Route: 048
     Dates: start: 20060920, end: 20060929
  2. CITALOPRAM HYDROBROMIDE [Concomitant]
  3. ALTACE [Concomitant]
  4. SEASONALE [Concomitant]
  5. TOPAMAX [Concomitant]
  6. ALPRAZOLAM [Concomitant]

REACTIONS (1)
  - SUICIDAL IDEATION [None]
